FAERS Safety Report 9094421 (Version 1)
Quarter: 2013Q1

REPORT INFORMATION
  Report Type: Spontaneous
  Country: GB (occurrence: GB)
  Receive Date: 20130218
  Receipt Date: 20130218
  Transmission Date: 20140127
  Serious: Yes (Other)
  Sender: FDA-Public Use
  Company Number: GB-ROCHE-1191747

PATIENT
  Age: 63 Year
  Sex: Female

DRUGS (2)
  1. ROACTEMRA [Suspect]
     Indication: RHEUMATOID ARTHRITIS
     Route: 065
     Dates: start: 201112, end: 201202
  2. BUTRANS [Concomitant]
     Indication: PAIN
     Route: 065

REACTIONS (2)
  - Bladder pain [Recovering/Resolving]
  - Vulvovaginal pain [Recovering/Resolving]
